FAERS Safety Report 18255727 (Version 1)
Quarter: 2020Q3

REPORT INFORMATION
  Report Type: Spontaneous
  Country: FR (occurrence: FR)
  Receive Date: 20200911
  Receipt Date: 20200911
  Transmission Date: 20201103
  Serious: Yes (Hospitalization)
  Sender: FDA-Public Use
  Company Number: FR-TEVA-2020-FR-1825063

PATIENT
  Age: 96 Year
  Sex: Female
  Weight: 50.3 kg

DRUGS (9)
  1. DIFFU K [Suspect]
     Active Substance: POTASSIUM CHLORIDE
     Indication: HYPOKALAEMIA
     Dosage: 2 DOSAGEFORM
     Route: 048
  2. VERAPAMIL (CHLORHYDRATE DE) [Suspect]
     Active Substance: VERAPAMIL HYDROCHLORIDE
     Indication: HYPERTENSION
     Dosage: 240 MG LP PER DAY:UNIT DOSE:1 DOSAGEFORM
     Route: 048
     Dates: end: 20200612
  3. DICLOFENAC [Suspect]
     Active Substance: DICLOFENAC
     Indication: PAIN
     Route: 061
  4. NAFTILUX [Suspect]
     Active Substance: NAFRONYL OXALATE
     Indication: THROMBOANGIITIS OBLITERANS
     Dosage: 2 DOSAGEFORM
     Route: 048
     Dates: end: 20200612
  5. DAFALGAN [Suspect]
     Active Substance: ACETAMINOPHEN
     Indication: PAIN
     Dosage: 2 X 3 PER DAY: UNIT DOSE:6DOSAGEFORM
     Route: 048
  6. DUOPLAVIN 75 MG/75 MG, COMPRIME PELLICULE [Suspect]
     Active Substance: ASPIRIN\CLOPIDOGREL
     Indication: TRANSIENT ISCHAEMIC ATTACK
     Dosage: UNIT DOSE:1 DOSAGEFORM
     Route: 048
     Dates: start: 2018, end: 20200614
  7. BISOPROLOL (FUMARATE ACIDE DE) [Suspect]
     Active Substance: BISOPROLOL FUMARATE
     Indication: HYPERTENSION
     Dosage: 2DOSAGEFORM
     Route: 048
  8. FLUOXETINE (CHLORHYDRATE DE) [Suspect]
     Active Substance: FLUOXETINE HYDROCHLORIDE
     Indication: DEPRESSION
     Dosage: 1 DOSAGE FORMS DAILY; 20 MG
     Route: 048
     Dates: end: 20200612
  9. MODURETIC 5?50 [Suspect]
     Active Substance: AMILORIDE HYDROCHLORIDE\HYDROCHLOROTHIAZIDE
     Indication: HYPERTENSION
     Dosage: .5 DOSAGE FORMS DAILY;  IN THE MORNING
     Route: 048
     Dates: end: 20200612

REACTIONS (1)
  - Orthostatic hypotension [Recovered/Resolved]

NARRATIVE: CASE EVENT DATE: 202006
